FAERS Safety Report 14555986 (Version 9)
Quarter: 2018Q2

REPORT INFORMATION
  Report Type: Report from Study
  Country: DE (occurrence: DE)
  Receive Date: 20180221
  Receipt Date: 20180612
  Transmission Date: 20180711
  Serious: Yes (Hospitalization, Other)
  Sender: FDA-Public Use
  Company Number: DE-BRISTOL-MYERS SQUIBB COMPANY-BMS-2018-013091

PATIENT
  Age: 69 Year
  Sex: Male

DRUGS (10)
  1. LERCANIDIPINE [Concomitant]
     Active Substance: LERCANIDIPINE
     Indication: CARDIOVASCULAR DISORDER
     Dosage: UNK
     Route: 065
  2. ALISKIREN [Concomitant]
     Active Substance: ALISKIREN
     Indication: CARDIOVASCULAR DISORDER
     Dosage: UNK
     Route: 065
  3. XGEVA [Suspect]
     Active Substance: DENOSUMAB
     Indication: PROPHYLAXIS
     Dosage: 120 MG, QWK
     Route: 065
     Dates: start: 20160907
  4. IDEOS [Concomitant]
     Active Substance: CALCIUM CARBONATE\CHOLECALCIFEROL
     Indication: PROPHYLAXIS
     Dosage: UNK
     Route: 065
     Dates: start: 20171229
  5. ASPIRIN. [Concomitant]
     Active Substance: ASPIRIN
     Indication: CEREBROVASCULAR DISORDER
     Dosage: 100 MG, QD
     Route: 065
  6. NIVOLUMAB [Suspect]
     Active Substance: NIVOLUMAB
     Indication: NON-SMALL CELL LUNG CANCER
     Dosage: 3 MG/KG, Q2WK
     Route: 042
     Dates: start: 20171213
  7. TAMSULOSIN [Concomitant]
     Active Substance: TAMSULOSIN
     Indication: PRODUCT USED FOR UNKNOWN INDICATION
     Dosage: 0.4 MG, QD
     Route: 065
  8. TRAMAL [Concomitant]
     Active Substance: TRAMADOL
     Indication: PROPHYLAXIS
     Dosage: 1 DF, UNK
     Route: 065
  9. NOVALGIN (METAMIZOLE SODIUM) [Suspect]
     Active Substance: METAMIZOLE SODIUM
     Indication: PROPHYLAXIS
     Dosage: 500 MG, PRN
     Route: 065
     Dates: end: 20180419
  10. PANTOZOL [Concomitant]
     Active Substance: PANTOPRAZOLE SODIUM
     Indication: PROPHYLAXIS
     Dosage: 20 MG, QD
     Route: 065

REACTIONS (6)
  - Osteitis [Unknown]
  - Acute sinusitis [Recovering/Resolving]
  - Myalgia [Not Recovered/Not Resolved]
  - Drug hypersensitivity [Recovered/Resolved]
  - Cough [Recovered/Resolved]
  - Osteonecrosis of jaw [Recovered/Resolved]

NARRATIVE: CASE EVENT DATE: 20180126
